FAERS Safety Report 13794769 (Version 1)
Quarter: 2017Q3

REPORT INFORMATION
  Report Type: Report from Study
  Country: CA (occurrence: CA)
  Receive Date: 20170726
  Receipt Date: 20170726
  Transmission Date: 20171127
  Serious: Yes (Hospitalization)
  Sender: FDA-Public Use
  Company Number: CA-EISAI MEDICAL RESEARCH-EC-2017-027300

PATIENT
  Sex: Female

DRUGS (9)
  1. LENVIMA [Suspect]
     Active Substance: LENVATINIB
     Indication: THYROID CANCER
     Route: 048
     Dates: start: 20170426, end: 201705
  2. IMDUR [Concomitant]
     Active Substance: ISOSORBIDE MONONITRATE
  3. VITAMIN B12 [Concomitant]
     Active Substance: CYANOCOBALAMIN
  4. COVERSYL [Concomitant]
     Active Substance: PERINDOPRIL
  5. CALCIUM [Concomitant]
     Active Substance: CALCIUM
  6. BISOPROLOL [Concomitant]
     Active Substance: BISOPROLOL
  7. RESTASIS [Concomitant]
     Active Substance: CYCLOSPORINE
  8. VITAMIN D [Concomitant]
     Active Substance: CHOLECALCIFEROL
  9. SYNTHROID [Concomitant]
     Active Substance: LEVOTHYROXINE SODIUM

REACTIONS (3)
  - Epistaxis [Unknown]
  - Hypertension [Unknown]
  - Blood test abnormal [Unknown]

NARRATIVE: CASE EVENT DATE: 2017
